FAERS Safety Report 19756016 (Version 1)
Quarter: 2021Q3

REPORT INFORMATION
  Report Type: Report from Study
  Country: US (occurrence: US)
  Receive Date: 20210827
  Receipt Date: 20210827
  Transmission Date: 20211014
  Serious: Yes (Hospitalization)
  Sender: FDA-Public Use
  Company Number: US-PFIZER INC-202101076682

PATIENT
  Age: 19 Year
  Sex: Female
  Weight: 65.5 kg

DRUGS (3)
  1. TALAZOPARIB. [Suspect]
     Active Substance: TALAZOPARIB
     Dosage: 500 UG, BID (DAY 1)
     Dates: start: 20210706
  2. TALAZOPARIB. [Suspect]
     Active Substance: TALAZOPARIB
     Dosage: 1000 UG, 1X/DAY (DAYS 2?6)
     Dates: start: 20210711
  3. ONIVYDE [Suspect]
     Active Substance: IRINOTECAN HYDROCHLORIDE
     Dosage: 160.21 MG, QD
     Route: 042
     Dates: start: 20210713

REACTIONS (4)
  - Mucosal inflammation [Unknown]
  - Gastrooesophageal reflux disease [Unknown]
  - Odynophagia [Unknown]
  - Weight decreased [Unknown]
